FAERS Safety Report 17816577 (Version 2)
Quarter: 2023Q1

REPORT INFORMATION
  Report Type: Spontaneous
  Country: US (occurrence: US)
  Receive Date: 20200522
  Receipt Date: 20230322
  Transmission Date: 20230418
  Serious: Yes (Other)
  Sender: FDA-Public Use
  Company Number: US-PFIZER INC-2020203100

PATIENT
  Age: 51 Year
  Sex: Female

DRUGS (1)
  1. XELJANZ XR [Suspect]
     Active Substance: TOFACITINIB CITRATE
     Indication: Rheumatoid arthritis
     Dosage: 11 MG, DAILY
     Route: 048
     Dates: start: 201810

REACTIONS (3)
  - Diverticulitis [Unknown]
  - Condition aggravated [Unknown]
  - COVID-19 [Unknown]

NARRATIVE: CASE EVENT DATE: 20220901
